FAERS Safety Report 9410125 (Version 1)
Quarter: 2013Q3

REPORT INFORMATION
  Report Type: Spontaneous
  Country: US (occurrence: US)
  Receive Date: 20130719
  Receipt Date: 20130719
  Transmission Date: 20140515
  Serious: No
  Sender: FDA-Public Use
  Company Number: US-B.I. PHARMACEUTICALS,INC./RIDGEFIELD-2013-BI-20725BP

PATIENT
  Age: 81 Year
  Sex: Male
  Weight: 64 kg

DRUGS (1)
  1. COMBIVENT [Suspect]
     Indication: CHRONIC OBSTRUCTIVE PULMONARY DISEASE
     Dosage: STRENGTH: 20 MCG/100 MCG; DAILY DOSE: 80 MCG/400 MCG
     Route: 055
     Dates: start: 20130528

REACTIONS (1)
  - Incorrect drug administration rate [Unknown]
